FAERS Safety Report 5807452-0 (Version None)
Quarter: 2008Q3

REPORT INFORMATION
  Report Type: 
  Country: None (occurrence: None)
  Receive Date: 20080709
  Receipt Date: 20080709
  Transmission Date: 20090109
  Serious: Yes (Hospitalization)
  Sender: FDA-Public Use
  Company Number: None

PATIENT
  Age: 59 Year
  Sex: Male
  Weight: 102 kg

DRUGS (2)
  1. INSULIN [Suspect]
     Dosage: 33 UNITS BID SQ
     Route: 058
     Dates: start: 20050301
  2. INSULIN [Suspect]
     Dosage: 15 UNITS BID SQ
     Route: 058
     Dates: start: 20040801

REACTIONS (1)
  - HYPOGLYCAEMIA [None]
